FAERS Safety Report 23755064 (Version 5)
Quarter: 2024Q3

REPORT INFORMATION
  Report Type: Report from Study
  Country: GB (occurrence: GB)
  Receive Date: 20240418
  Receipt Date: 20240805
  Transmission Date: 20241017
  Serious: No
  Sender: SANDOZ
  Company Number: GB-SANDOZ-SDZ2024GB040246

PATIENT
  Sex: Male

DRUGS (3)
  1. HYRIMOZ [Suspect]
     Active Substance: ADALIMUMAB-ADAZ
     Indication: Psoriasis
     Dosage: 80 MG, WEEK 0
     Route: 058
     Dates: start: 20240409
  2. HYRIMOZ [Suspect]
     Active Substance: ADALIMUMAB-ADAZ
     Dosage: 40 MG, Q2W (40MG/0.4ML SOLUTION FOR INJECTION PRE-FILLED PEN)
     Route: 058
     Dates: start: 20240409
  3. HYRIMOZ [Suspect]
     Active Substance: ADALIMUMAB-ADAZ
     Dosage: 40 MG, WEEK 1
     Route: 058

REACTIONS (4)
  - Headache [Unknown]
  - Dental care [Unknown]
  - Wrong technique in device usage process [Unknown]
  - Device issue [Unknown]
